FAERS Safety Report 6151858-X (Version None)
Quarter: 2009Q2

REPORT INFORMATION
  Report Type: 
  Country: None (occurrence: None)
  Receive Date: 20090410
  Receipt Date: 20090331
  Transmission Date: 20091009
  Serious: Yes (Hospitalization, Other)
  Sender: FDA-Public Use
  Company Number: US-AMGEN-US338548

PATIENT
  Sex: Male
  Weight: 84.4 kg

DRUGS (4)
  1. NPLATE [Suspect]
     Indication: IDIOPATHIC THROMBOCYTOPENIC PURPURA
     Route: 058
     Dates: start: 20081009, end: 20081121
  2. CORTICOSTEROIDS [Concomitant]
     Route: 065
  3. RITUXIMAB [Concomitant]
     Route: 065
  4. CAMPATH [Concomitant]
     Route: 065

REACTIONS (2)
  - CHRONIC LYMPHOCYTIC LEUKAEMIA RECURRENT [None]
  - FALL [None]
